FAERS Safety Report 8818325 (Version 3)
Quarter: 2013Q1

REPORT INFORMATION
  Report Type: Spontaneous
  Country: US (occurrence: US)
  Receive Date: 20121001
  Receipt Date: 20130122
  Transmission Date: 20140127
  Serious: Yes (Other)
  Sender: FDA-Public Use
  Company Number: US-ASTRAZENECA-2012SE73629

PATIENT
  Age: 56 Year
  Sex: Male

DRUGS (2)
  1. SEROQUEL [Suspect]
     Indication: SLEEP DISORDER
     Route: 048
  2. CRESTOR [Suspect]
     Route: 048

REACTIONS (5)
  - Myocardial infarction [Unknown]
  - Bipolar disorder [Unknown]
  - Sleep apnoea syndrome [Unknown]
  - Sleep disorder [Unknown]
  - Off label use [Unknown]
